FAERS Safety Report 6129022-X (Version None)
Quarter: 2009Q1

REPORT INFORMATION
  Report Type: 
  Country: None (occurrence: None)
  Receive Date: 20090324
  Receipt Date: 20090311
  Transmission Date: 20090719
  Serious: Yes (Hospitalization)
  Sender: FDA-Public Use
  Company Number: FR-ELI_LILLY_AND_COMPANY-FR200903002929

PATIENT
  Age: 60 Year
  Sex: Female

DRUGS (2)
  1. FORTEO [Suspect]
     Indication: OSTEOPOROSIS
     Dosage: 20 UG, DAILY (1/D)
     Dates: start: 20080105
  2. GARDENAL [Concomitant]

REACTIONS (7)
  - ANAEMIA [None]
  - FUNGAL INFECTION [None]
  - HEADACHE [None]
  - HYPERTHERMIA [None]
  - MELAENA [None]
  - PUNCTURE SITE INFECTION [None]
  - WEIGHT DECREASED [None]
